FAERS Safety Report 5977721-2 (Version None)
Quarter: 2008Q4

REPORT INFORMATION
  Report Type: 
  Country: None (occurrence: None)
  Receive Date: 20081203
  Receipt Date: 20081124
  Transmission Date: 20090506
  Serious: Yes (Other)
  Sender: FDA-Public Use
  Company Number: DE-JNJFOC-20081105726

PATIENT
  Sex: Female

DRUGS (1)
  1. BETADORM D [Suspect]
     Indication: DRUG USE FOR UNKNOWN INDICATION
     Dosage: FOR YEARS
     Route: 048

REACTIONS (1)
  - INTENTIONAL DRUG MISUSE [None]
